FAERS Safety Report 14122135 (Version 1)
Quarter: 2017Q4

REPORT INFORMATION
  Report Type: Spontaneous
  Country: HR (occurrence: HR)
  Receive Date: 20171024
  Receipt Date: 20171024
  Transmission Date: 20180321
  Serious: Yes (Other)
  Sender: FDA-Public Use
  Company Number: HR-ABBVIE-17P-216-2141748-00

PATIENT
  Age: 14 Year
  Sex: Female

DRUGS (12)
  1. AKINETON [Suspect]
     Active Substance: BIPERIDEN HYDROCHLORIDE
     Indication: SUICIDE ATTEMPT
  2. LOQUEN (QUETIAPINE FUMARATE) [Suspect]
     Active Substance: QUETIAPINE FUMARATE
     Indication: SUICIDE ATTEMPT
  3. DEPAKINE CHRONO [Suspect]
     Active Substance: VALPROATE SODIUM
     Indication: OVERDOSE
     Route: 048
     Dates: start: 20170827, end: 20170827
  4. MIRZATEN (MIRTAZAPINE) [Suspect]
     Active Substance: MIRTAZAPINE
     Indication: OVERDOSE
     Route: 048
     Dates: start: 20170827, end: 20170827
  5. DEPAKINE CHRONO [Suspect]
     Active Substance: VALPROATE SODIUM
     Indication: SUICIDE ATTEMPT
  6. HALDOL DECANOATE [Suspect]
     Active Substance: HALOPERIDOL DECANOATE
     Indication: SUICIDE ATTEMPT
  7. AKINETON [Suspect]
     Active Substance: BIPERIDEN HYDROCHLORIDE
     Indication: OVERDOSE
     Route: 048
     Dates: start: 20170827, end: 20170827
  8. HALDOL DECANOATE [Suspect]
     Active Substance: HALOPERIDOL DECANOATE
     Indication: OVERDOSE
     Route: 048
     Dates: start: 20170827, end: 20170827
  9. LOQUEN (QUETIAPINE FUMARATE) [Suspect]
     Active Substance: QUETIAPINE FUMARATE
     Indication: OVERDOSE
     Route: 048
     Dates: start: 20170827, end: 20170827
  10. RIVOTRIL [Suspect]
     Active Substance: CLONAZEPAM
     Indication: OVERDOSE
     Route: 048
     Dates: start: 20170827, end: 20170827
  11. RIVOTRIL [Suspect]
     Active Substance: CLONAZEPAM
     Indication: SUICIDE ATTEMPT
  12. MIRZATEN (MIRTAZAPINE) [Suspect]
     Active Substance: MIRTAZAPINE
     Indication: SUICIDE ATTEMPT

REACTIONS (6)
  - Mydriasis [Unknown]
  - Suicide attempt [Unknown]
  - Respiratory failure [Unknown]
  - Restlessness [Unknown]
  - Loss of consciousness [Unknown]
  - Intentional overdose [Unknown]

NARRATIVE: CASE EVENT DATE: 20170827
